FAERS Safety Report 23618861 (Version 2)
Quarter: 2024Q1

REPORT INFORMATION
  Report Type: Spontaneous
  Country: US (occurrence: US)
  Receive Date: 20240311
  Receipt Date: 20240321
  Transmission Date: 20240410
  Serious: No
  Sender: FDA-Public Use
  Company Number: US-PFIZER INC-PV202300192197

PATIENT
  Age: 83 Year
  Sex: Female

DRUGS (1)
  1. IBRANCE [Suspect]
     Active Substance: PALBOCICLIB
     Indication: Breast cancer female
     Dosage: 125 MG, CYCLIC, ONE TABLET ONCE DAILY, ON DAYS 1-21 THEN OFF FOR 7 DAYS
     Route: 048

REACTIONS (4)
  - Depressed mood [Unknown]
  - Nervousness [Unknown]
  - Illness [Unknown]
  - Insomnia [Unknown]
